FAERS Safety Report 23240753 (Version 1)
Quarter: 2023Q4

REPORT INFORMATION
  Report Type: Spontaneous
  Country: NO (occurrence: NO)
  Receive Date: 20231129
  Receipt Date: 20231129
  Transmission Date: 20240109
  Serious: Yes (Hospitalization)
  Sender: FDA-Public Use
  Company Number: NO-Zuellig Korea-ATNAHS20231103525

PATIENT
  Age: 5 Decade
  Sex: Male

DRUGS (3)
  1. DIAZEPAM [Suspect]
     Active Substance: DIAZEPAM
     Indication: Seizure prophylaxis
  2. THIAMINE [Suspect]
     Active Substance: THIAMINE
     Indication: Seizure prophylaxis
  3. ELECTROLYTES NOS [Suspect]
     Active Substance: ELECTROLYTES NOS
     Indication: Electrolyte substitution therapy

REACTIONS (4)
  - Asthenia [Unknown]
  - Dysarthria [Unknown]
  - Dysphagia [Unknown]
  - Off label use [Unknown]
